FAERS Safety Report 5638897-X (Version None)
Quarter: 2008Q1

REPORT INFORMATION
  Report Type: 
  Country: None (occurrence: None)
  Receive Date: 20080225
  Receipt Date: 20080225
  Transmission Date: 20080703
  Serious: Yes (Life-Threatening, Hospitalization)
  Sender: FDA-Public Use
  Company Number: None

PATIENT
  Age: 58 Year
  Sex: Female
  Weight: 73.4827 kg

DRUGS (1)
  1. SINGULAIR [Suspect]
     Indication: ASTHMA
     Dosage: 10 MG 1 TAB DAILY PO
     Route: 048
     Dates: start: 20070524, end: 20070530

REACTIONS (6)
  - ABASIA [None]
  - ALLERGIC GRANULOMATOUS ANGIITIS [None]
  - MONOPLEGIA [None]
  - PAIN IN EXTREMITY [None]
  - PARAESTHESIA [None]
  - PERONEAL NERVE PALSY [None]
